FAERS Safety Report 4554710-6 (Version None)
Quarter: 2004Q4

REPORT INFORMATION
  Report Type: 
  Country: None (occurrence: None)
  Receive Date: 20041227
  Receipt Date: 20040901
  Transmission Date: 20050328
  Serious: No
  Sender: FDA-Public Use
  Company Number: US089819

PATIENT
  Age: 65 Year
  Sex: Male

DRUGS (6)
  1. SENSIPAR [Suspect]
     Indication: HYPERPARATHYROIDISM SECONDARY
     Dosage: 60 MG, 1 IN 1 DAYS, PO
     Route: 048
     Dates: start: 20040805
  2. METOPROLOL [Concomitant]
  3. LOSARTAN POTASSIUM [Concomitant]
  4. NIFEDIPINE [Concomitant]
  5. DIPHENHYDRAMINE HYDROCHLORIDE [Concomitant]
  6. PARICALCITOL [Concomitant]

REACTIONS (3)
  - AGITATION [None]
  - ANXIETY [None]
  - INSOMNIA [None]
